FAERS Safety Report 14873100 (Version 2)
Quarter: 2021Q2

REPORT INFORMATION
  Report Type: Spontaneous
  Country: CA (occurrence: CA)
  Receive Date: 20180510
  Receipt Date: 20210508
  Transmission Date: 20210716
  Serious: Yes (Hospitalization)
  Sender: FDA-Public Use
  Company Number: CA-ROCHE-2117550

PATIENT
  Age: 77 Year
  Sex: Female
  Weight: 52 kg

DRUGS (5)
  1. CALCIUM FOLINATE [Suspect]
     Active Substance: LEUCOVORIN CALCIUM
     Indication: PRODUCT USED FOR UNKNOWN INDICATION
     Route: 042
  2. FLUOROURACIL. [Suspect]
     Active Substance: FLUOROURACIL
     Indication: PRODUCT USED FOR UNKNOWN INDICATION
     Route: 042
  3. IRINOTECAN HYDROCHLORIDE. [Suspect]
     Active Substance: IRINOTECAN HYDROCHLORIDE
     Indication: PRODUCT USED FOR UNKNOWN INDICATION
     Route: 042
  4. AVASTIN [Suspect]
     Active Substance: BEVACIZUMAB
     Indication: PRODUCT USED FOR UNKNOWN INDICATION
     Route: 042
  5. FRAGMIN [Suspect]
     Active Substance: DALTEPARIN SODIUM
     Indication: PRODUCT USED FOR UNKNOWN INDICATION
     Route: 058

REACTIONS (10)
  - Haemoglobin decreased [Recovered/Resolved]
  - Heparin-induced thrombocytopenia [Recovered/Resolved]
  - Stomatitis [Recovered/Resolved]
  - Abdominal pain [Recovered/Resolved]
  - Pancytopenia [Recovered/Resolved]
  - Abdominal distension [Recovered/Resolved]
  - Constipation [Recovered/Resolved]
  - Venous pressure jugular decreased [Recovered/Resolved]
  - Diarrhoea [Recovered/Resolved]
  - Febrile neutropenia [Recovered/Resolved]
